FAERS Safety Report 6935318-1 (Version None)
Quarter: 2010Q3

REPORT INFORMATION
  Report Type: 
  Country: None (occurrence: None)
  Receive Date: 20100823
  Receipt Date: 20100816
  Transmission Date: 20110219
  Serious: Yes (Other)
  Sender: FDA-Public Use
  Company Number: US-ASTRAZENECA-2006UW12028

PATIENT
  Age: 18291 Day
  Sex: Male
  Weight: 136.1 kg

DRUGS (31)
  1. SEROQUEL [Suspect]
     Indication: SCHIZOPHRENIA
     Dosage: 25-200 MG
     Route: 048
     Dates: start: 19980101, end: 20070101
  2. SEROQUEL [Suspect]
     Indication: BIPOLAR DISORDER
     Dosage: 25-200 MG
     Route: 048
     Dates: start: 19980101, end: 20070101
  3. SEROQUEL [Suspect]
     Indication: HALLUCINATION
     Dosage: 25-200 MG
     Route: 048
     Dates: start: 19980101, end: 20070101
  4. SEROQUEL [Suspect]
     Dosage: 25 MG - 600 MG
     Route: 048
     Dates: start: 20000721
  5. SEROQUEL [Suspect]
     Dosage: 25 MG - 600 MG
     Route: 048
     Dates: start: 20000721
  6. SEROQUEL [Suspect]
     Dosage: 25 MG - 600 MG
     Route: 048
     Dates: start: 20000721
  7. ZYPREXA [Suspect]
     Dates: start: 20010101, end: 20020101
  8. CLONAZEPAM [Concomitant]
     Indication: PANIC ATTACK
     Dosage: 0.5 MG-1 MG
  9. CLONAZEPAM [Concomitant]
     Indication: AGORAPHOBIA
     Dosage: 0.5 MG-1 MG
  10. DICLOFENAC [Concomitant]
     Indication: PAIN
  11. DICLOFENAC [Concomitant]
     Indication: MUSCULOSKELETAL STIFFNESS
  12. ACETAMINOPHEN [Concomitant]
     Dosage: 500  AS NEEDED
  13. HYDROCODONE BITARTRATE AND ACETAMINOPHEN [Concomitant]
     Indication: PAIN
     Dosage: STRENGTH 7.5/500
  14. MECLIZINE [Concomitant]
     Indication: DIZZINESS
  15. MECLIZINE [Concomitant]
     Indication: VERTIGO
  16. RANITIDINE [Concomitant]
  17. DOXYCYCLINE [Concomitant]
  18. PREDNISONE [Concomitant]
     Dosage: TAPERING DOSE (10 MG TO 5 MG)
  19. WELLBUTRIN [Concomitant]
     Indication: DEPRESSED MOOD
  20. WELLBUTRIN [Concomitant]
     Indication: MOOD ALTERED
  21. EFFEXOR XR [Concomitant]
  22. LOTENSIN [Concomitant]
  23. AMARYL [Concomitant]
  24. ASPIRIN [Concomitant]
  25. AMBIEN [Concomitant]
  26. TRILEPTAL [Concomitant]
  27. CLONIDINE [Concomitant]
  28. CELEXA [Concomitant]
  29. NEURONTIN [Concomitant]
  30. RESTORIL [Concomitant]
  31. LORAZEPAM [Concomitant]

REACTIONS (23)
  - ARTERIOSCLEROSIS OBLITERANS [None]
  - BRONCHITIS [None]
  - CHRONIC OBSTRUCTIVE PULMONARY DISEASE [None]
  - CONDITION AGGRAVATED [None]
  - DERMAL CYST [None]
  - DIABETIC NEUROPATHY [None]
  - GASTROENTERITIS VIRAL [None]
  - HYPERTENSION [None]
  - INSOMNIA [None]
  - MAJOR DEPRESSION [None]
  - MENTAL DISORDER [None]
  - MYALGIA [None]
  - NAIL GROWTH ABNORMAL [None]
  - ONYCHOMYCOSIS [None]
  - OSTEOARTHRITIS [None]
  - PANCREATITIS [None]
  - PARAESTHESIA [None]
  - PHARYNGITIS [None]
  - PNEUMONIA [None]
  - POST-TRAUMATIC STRESS DISORDER [None]
  - SCHIZOPHRENIA [None]
  - TINNITUS [None]
  - TYPE 2 DIABETES MELLITUS [None]
